FAERS Safety Report 21330088 (Version 1)
Quarter: 2022Q3

REPORT INFORMATION
  Report Type: Spontaneous
  Country: None (occurrence: US)
  Receive Date: 20220913
  Receipt Date: 20220913
  Transmission Date: 20221027
  Serious: No
  Sender: FDA-Public Use
  Company Number: US-Breckenridge Pharmaceutical, Inc.-2132816

PATIENT
  Age: 75 Year
  Sex: Female
  Weight: 59.545 kg

DRUGS (4)
  1. DULOXETINE [Suspect]
     Active Substance: DULOXETINE
     Indication: Depression
     Route: 048
  2. SYNTHROID [Concomitant]
     Active Substance: LEVOTHYROXINE SODIUM
  3. CYTOMEL [Concomitant]
     Active Substance: LIOTHYRONINE SODIUM
  4. XANAX [Concomitant]
     Active Substance: ALPRAZOLAM

REACTIONS (6)
  - Trichorrhexis [Unknown]
  - Hair texture abnormal [Unknown]
  - Alopecia [Unknown]
  - Decreased appetite [Unknown]
  - Weight increased [Unknown]
  - Fatigue [Unknown]
